FAERS Safety Report 21458296 (Version 2)
Quarter: 2022Q4

REPORT INFORMATION
  Report Type: Spontaneous
  Country: US (occurrence: US)
  Receive Date: 20221014
  Receipt Date: 20221017
  Transmission Date: 20230112
  Serious: No
  Sender: FDA-Public Use
  Company Number: US-PFIZER INC-202201228719

PATIENT
  Age: 56 Year
  Sex: Female
  Weight: 99.79 kg

DRUGS (1)
  1. PAXLOVID [Suspect]
     Active Substance: NIRMATRELVIR\RITONAVIR
     Indication: COVID-19 treatment
     Dosage: PACK FOR AM AND PACK FOR PM
     Dates: start: 20221010

REACTIONS (5)
  - Dysphagia [Unknown]
  - Dysphonia [Recovering/Resolving]
  - Throat tightness [Recovering/Resolving]
  - Dysgeusia [Unknown]
  - Hypersensitivity [Recovering/Resolving]

NARRATIVE: CASE EVENT DATE: 20221010
